FAERS Safety Report 11501762 (Version 2)
Quarter: 2015Q3

REPORT INFORMATION
  Report Type: Spontaneous
  Country: JP (occurrence: JP)
  Receive Date: 20150914
  Receipt Date: 20150924
  Transmission Date: 20151125
  Serious: Yes (Hospitalization)
  Sender: FDA-Public Use
  Company Number: JP-SA-2015SA136554

PATIENT
  Age: 69 Year
  Sex: Male
  Weight: 64 kg

DRUGS (26)
  1. IRINOTECAN HYDROCHLORIDE. [Suspect]
     Active Substance: IRINOTECAN HYDROCHLORIDE
     Indication: PANCREATIC CARCINOMA
     Route: 041
     Dates: start: 20150605, end: 20150605
  2. BENIDIPINE HYDROCHLORIDE [Concomitant]
     Active Substance: BENIDIPINE HYDROCHLORIDE
     Dates: end: 20150717
  3. DECADRON [Concomitant]
     Active Substance: DEXAMETHASONE
     Dates: start: 20150521
  4. IRINOTECAN HYDROCHLORIDE. [Suspect]
     Active Substance: IRINOTECAN HYDROCHLORIDE
     Indication: PANCREATIC CARCINOMA
     Route: 041
     Dates: start: 20150703, end: 20150703
  5. 5-FU [Suspect]
     Active Substance: FLUOROURACIL
     Indication: PANCREATIC CARCINOMA
     Dosage: ONCE IN 2 DAYS
     Route: 041
     Dates: start: 20150605, end: 20150605
  6. DEXART [Concomitant]
     Active Substance: DEXAMETHASONE SODIUM PHOSPHATE
     Dates: start: 20150520, end: 20150703
  7. RIVOTRIL [Concomitant]
     Active Substance: CLONAZEPAM
     Dates: start: 20150721
  8. 5-FU [Suspect]
     Active Substance: FLUOROURACIL
     Indication: PANCREATIC CARCINOMA
     Dosage: ONCE IN 2 DAYS
     Route: 041
     Dates: start: 20150619, end: 20150619
  9. TAKECAB [Concomitant]
     Dates: start: 20150525, end: 20150721
  10. ELPLAT [Suspect]
     Active Substance: OXALIPLATIN
     Indication: PANCREATIC CARCINOMA
     Route: 041
     Dates: start: 20150703, end: 20150703
  11. 5-FU [Suspect]
     Active Substance: FLUOROURACIL
     Indication: PANCREATIC CARCINOMA
     Dosage: ONCE IN 2 DAYS
     Route: 041
     Dates: start: 20150520, end: 20150520
  12. IRINOTECAN HYDROCHLORIDE. [Suspect]
     Active Substance: IRINOTECAN HYDROCHLORIDE
     Indication: PANCREATIC CARCINOMA
     Route: 041
     Dates: start: 20150619, end: 20150619
  13. BLOPRESS [Concomitant]
     Active Substance: CANDESARTAN CILEXETIL
     Dates: start: 20150721
  14. URSO [Concomitant]
     Active Substance: URSODIOL
     Dates: start: 20150727
  15. ELPLAT [Suspect]
     Active Substance: OXALIPLATIN
     Indication: PANCREATIC CARCINOMA
     Route: 041
     Dates: start: 20150520, end: 20150520
  16. ELPLAT [Suspect]
     Active Substance: OXALIPLATIN
     Indication: PANCREATIC CARCINOMA
     Route: 041
     Dates: start: 20150619, end: 20150619
  17. IRINOTECAN HYDROCHLORIDE. [Suspect]
     Active Substance: IRINOTECAN HYDROCHLORIDE
     Indication: PANCREATIC CARCINOMA
     Route: 041
     Dates: start: 20150520, end: 20150520
  18. GANATON [Concomitant]
     Active Substance: ITOPRIDE
     Dates: start: 20150528, end: 20150721
  19. ALOXI [Concomitant]
     Active Substance: PALONOSETRON HYDROCHLORIDE
     Dates: start: 20150520, end: 20150703
  20. CRESTOR [Concomitant]
     Active Substance: ROSUVASTATIN CALCIUM
     Dates: start: 20150721
  21. ZETIA [Concomitant]
     Active Substance: EZETIMIBE
     Dates: start: 20150721
  22. LOXOPROFEN [Concomitant]
     Active Substance: LOXOPROFEN
     Dates: start: 20150721
  23. ELPLAT [Suspect]
     Active Substance: OXALIPLATIN
     Indication: PANCREATIC CARCINOMA
     Route: 041
     Dates: start: 20150605, end: 20150605
  24. 5-FU [Suspect]
     Active Substance: FLUOROURACIL
     Indication: PANCREATIC CARCINOMA
     Dosage: ONCE IN 2 DAYS
     Route: 041
     Dates: start: 20150703, end: 20150703
  25. LEVOFOLINATE [Concomitant]
     Active Substance: LEVOLEUCOVORIN CALCIUM
     Dates: start: 20150520, end: 20150703
  26. PROEMEND [Concomitant]
     Active Substance: FOSAPREPITANT
     Dates: start: 20150520, end: 20150703

REACTIONS (9)
  - Diarrhoea [Unknown]
  - Gastric haemorrhage [Recovered/Resolved]
  - Alanine aminotransferase increased [Unknown]
  - Gastritis [Recovering/Resolving]
  - Febrile neutropenia [Recovered/Resolved]
  - White blood cell count decreased [Recovered/Resolved]
  - Blood bilirubin increased [Unknown]
  - Aspartate aminotransferase increased [Unknown]
  - Stomatitis [Unknown]

NARRATIVE: CASE EVENT DATE: 2015
